FAERS Safety Report 5663766-9 (Version None)
Quarter: 2008Q1

REPORT INFORMATION
  Report Type: 
  Country: None (occurrence: None)
  Receive Date: 20080311
  Receipt Date: 20080226
  Transmission Date: 20080703
  Serious: Yes (Hospitalization)
  Sender: FDA-Public Use
  Company Number: GXKR2008US02051

PATIENT
  Age: 50 Year
  Sex: Female

DRUGS (11)
  1. METFORMIN HCL [Suspect]
  2. HYDROCHLOROTHIAZIDE [Suspect]
  3. L-THYROXINE (LEVOTHYROXINE) [Concomitant]
  4. ACETAMINOPHEN W/ CODEINE [Concomitant]
  5. ASPIRIN TAB [Concomitant]
  6. SIMVASTATIN [Concomitant]
  7. OMEPRAZOLE [Concomitant]
  8. PERGABALIN (PREGABALIN) [Concomitant]
  9. ARIPIPRAZOLE [Concomitant]
  10. CANDESARTAN(CANDESARTAN) UNKNOWN [Suspect]
  11. CELECOXIB(CELECOXIB) UNKNOWN [Suspect]
     Indication: ARTHRALGIA

REACTIONS (17)
  - ASTHENIA [None]
  - AZOTAEMIA [None]
  - BREATH SOUNDS ABNORMAL [None]
  - DRUG INTERACTION [None]
  - HAEMATEMESIS [None]
  - HAEMODIALYSIS [None]
  - HYPERKALAEMIA [None]
  - HYPOVOLAEMIA [None]
  - LACTIC ACIDOSIS [None]
  - OBESITY [None]
  - OCCULT BLOOD POSITIVE [None]
  - PANCREATITIS ACUTE [None]
  - PROTEINURIA [None]
  - RENAL IMPAIRMENT [None]
  - SINUS TACHYCARDIA [None]
  - SOMNOLENCE [None]
  - URINE OUTPUT DECREASED [None]
